FAERS Safety Report 24057710 (Version 1)
Quarter: 2024Q3

REPORT INFORMATION
  Report Type: Report from Study
  Country: US (occurrence: US)
  Receive Date: 20240706
  Receipt Date: 20240706
  Transmission Date: 20241016
  Serious: Yes (Hospitalization)
  Sender: ABBVIE
  Company Number: US-ABBVIE-5827724

PATIENT
  Age: 64 Year
  Sex: Female

DRUGS (1)
  1. HUMIRA [Suspect]
     Active Substance: ADALIMUMAB
     Indication: Rheumatoid arthritis
     Route: 058
     Dates: start: 20230115

REACTIONS (4)
  - Vascular access complication [Unknown]
  - Vascular access site infection [Unknown]
  - Hospitalisation [Recovered/Resolved]
  - Vascular access site haemorrhage [Unknown]

NARRATIVE: CASE EVENT DATE: 20240601
